FAERS Safety Report 24712510 (Version 1)
Quarter: 2024Q4

REPORT INFORMATION
  Report Type: Spontaneous
  Country: US (occurrence: None)
  Receive Date: 20241207
  Receipt Date: 20241207
  Transmission Date: 20250115
  Serious: Yes (Life-Threatening, Disabling, Other)
  Sender: Public
  Company Number: None

PATIENT
  Age: 40 Year
  Sex: Female
  Weight: 74.25 kg

DRUGS (1)
  1. SPRAVATO [Suspect]
     Active Substance: ESKETAMINE
     Dates: start: 20231105, end: 20240407

REACTIONS (3)
  - Mania [None]
  - Loss of personal independence in daily activities [None]
  - Emotional disorder [None]

NARRATIVE: CASE EVENT DATE: 20240227
